FAERS Safety Report 6142784-0 (Version None)
Quarter: 2009Q2

REPORT INFORMATION
  Report Type: 
  Country: None (occurrence: None)
  Receive Date: 20090403
  Receipt Date: 20090324
  Transmission Date: 20091009
  Serious: Yes (Life-Threatening, Hospitalization)
  Sender: FDA-Public Use
  Company Number: GB-AMGEN-US340627

PATIENT
  Age: 35 Year
  Sex: Female

DRUGS (11)
  1. ENBREL [Suspect]
     Indication: PSORIATIC ARTHROPATHY
     Route: 058
     Dates: start: 20081101, end: 20090224
  2. ALCOHOL [Suspect]
     Route: 065
  3. CODEINE PHOSPHATE [Concomitant]
     Dosage: UNKNOWN
     Route: 065
  4. FOLIC ACID [Concomitant]
     Dosage: UNKNOWN
     Route: 065
  5. HYDROXOCOBALAMIN [Concomitant]
     Dosage: UNKNOWN
     Route: 065
  6. LEVOTHYROXINE SODIUM [Concomitant]
     Dosage: UNKNOWN
     Route: 065
  7. THIAMINE HYDROCHLORIDE [Concomitant]
     Dosage: UNKNOWN
     Route: 065
  8. TRAMADOL HYDROCHLORIDE [Concomitant]
     Route: 065
  9. CALCICHEW [Concomitant]
     Dosage: UNKNOWN
     Route: 065
  10. HYDROXYZINE HYDROCHLORIDE [Concomitant]
     Dosage: UNKNOWN
     Route: 065
  11. VITAMIN B COMPLEX CAP [Concomitant]
     Route: 065

REACTIONS (3)
  - ACUTE HEPATIC FAILURE [None]
  - CONDITION AGGRAVATED [None]
  - SEPSIS [None]
